FAERS Safety Report 7150151-6 (Version None)
Quarter: 2010Q4

REPORT INFORMATION
  Report Type: 
  Country: None (occurrence: None)
  Receive Date: 20101207
  Receipt Date: 20101207
  Transmission Date: 20110411
  Serious: Yes (Other)
  Sender: FDA-Public Use
  Company Number: None

PATIENT
  Age: 26 Year
  Sex: Female
  Weight: 124.2856 kg

DRUGS (2)
  1. AVELOX [Suspect]
     Indication: BRONCHITIS
     Dosage: 400MG ONE DAILY F PO
     Route: 048
     Dates: start: 20101202, end: 20101206
  2. AVELOX [Suspect]
     Indication: PNEUMONIA
     Dosage: 400MG ONE DAILY F PO
     Route: 048
     Dates: start: 20101202, end: 20101206

REACTIONS (5)
  - ANXIETY [None]
  - CONFUSIONAL STATE [None]
  - CONTUSION [None]
  - INSOMNIA [None]
  - MUSCLE SPASMS [None]
